FAERS Safety Report 23469072 (Version 1)
Quarter: 2024Q1

REPORT INFORMATION
  Report Type: Report from Study
  Country: CA (occurrence: CA)
  Receive Date: 20240202
  Receipt Date: 20240202
  Transmission Date: 20240409
  Serious: Yes (Death, Hospitalization, Other)
  Sender: FDA-Public Use
  Company Number: CA-ABBVIE-5183733

PATIENT
  Age: 79 Year
  Sex: Male
  Weight: 81 kg

DRUGS (3)
  1. VENCLEXTA [Suspect]
     Active Substance: VENETOCLAX
     Indication: Acute myeloid leukaemia
     Route: 048
     Dates: start: 20220606, end: 20230707
  2. VIDAZA [Suspect]
     Active Substance: AZACITIDINE
     Indication: Product used for unknown indication
     Route: 058
     Dates: start: 20230626, end: 20230704
  3. FILGRASTIM [Concomitant]
     Active Substance: FILGRASTIM
     Indication: Product used for unknown indication
     Dates: start: 20230712, end: 20230714

REACTIONS (9)
  - White blood cell count decreased [Fatal]
  - Tooth extraction [Recovering/Resolving]
  - Febrile neutropenia [Unknown]
  - Respiratory tract congestion [Unknown]
  - White blood cell count abnormal [Recovering/Resolving]
  - Pleural effusion [Unknown]
  - Pneumonia [Fatal]
  - Atelectasis [Unknown]
  - Neutrophil count decreased [Unknown]

NARRATIVE: CASE EVENT DATE: 20230419
